FAERS Safety Report 12181087 (Version 1)
Quarter: 2016Q1

REPORT INFORMATION
  Report Type: Spontaneous
  Country: BR (occurrence: BR)
  Receive Date: 20160315
  Receipt Date: 20160315
  Transmission Date: 20160526
  Serious: Yes (Other)
  Sender: FDA-Public Use
  Company Number: BR-ABBVIE-16P-020-1569168-00

PATIENT
  Age: 4 Year
  Sex: Male
  Weight: 30 kg

DRUGS (5)
  1. DEPAKENE [Suspect]
     Active Substance: VALPROIC ACID
     Indication: SEIZURE
  2. DEPAKENE [Suspect]
     Active Substance: VALPROIC ACID
     Indication: HEADACHE
     Dosage: UNIT DOSE: HALF TABLET IN THE MORNING AND 1 TABLET AT NIGHT
     Route: 048
     Dates: start: 201508
  3. DEPAKENE [Suspect]
     Active Substance: VALPROIC ACID
     Indication: SLEEP DISORDER
  4. DEPAKENE [Suspect]
     Active Substance: VALPROIC ACID
     Indication: HEADACHE
     Route: 048
     Dates: start: 2011
  5. DEPAKENE [Suspect]
     Active Substance: VALPROIC ACID
     Indication: SLEEP DISORDER
     Route: 065

REACTIONS (5)
  - Off label use [Unknown]
  - Wrong technique in product usage process [Unknown]
  - Seizure [Recovered/Resolved]
  - Drug administered to patient of inappropriate age [Unknown]
  - Product use issue [Unknown]

NARRATIVE: CASE EVENT DATE: 2012
